FAERS Safety Report 6858765-5 (Version None)
Quarter: 2010Q3

REPORT INFORMATION
  Report Type: 
  Country: None (occurrence: None)
  Receive Date: 20100719
  Receipt Date: 20080215
  Transmission Date: 20110219
  Serious: No
  Sender: FDA-Public Use
  Company Number: US-PFIZER INC-2008014265

PATIENT
  Sex: Female
  Weight: 68.2 kg

DRUGS (2)
  1. CHANTIX [Suspect]
     Indication: SMOKING CESSATION THERAPY
     Dates: start: 20071201, end: 20080206
  2. PAXIL [Concomitant]
     Indication: PANIC ATTACK

REACTIONS (3)
  - DYSPNOEA [None]
  - HEADACHE [None]
  - STRESS [None]
